FAERS Safety Report 12670922 (Version 1)
Quarter: 2016Q3

REPORT INFORMATION
  Report Type: Spontaneous
  Country: US (occurrence: US)
  Receive Date: 20160822
  Receipt Date: 20160822
  Transmission Date: 20161109
  Serious: No
  Sender: FDA-Public Use
  Company Number: US-JAZZ-2016-US-006215

PATIENT
  Sex: Male
  Weight: 65 kg

DRUGS (9)
  1. XYREM [Suspect]
     Active Substance: SODIUM OXYBATE
     Indication: NARCOLEPSY
     Dosage: 2.25 G, BID
     Route: 048
     Dates: start: 201602, end: 2016
  2. DIVALPROEX [Concomitant]
     Active Substance: DIVALPROEX SODIUM
  3. ADDERALL [Concomitant]
     Active Substance: AMPHETAMINE ASPARTATE\AMPHETAMINE SULFATE\DEXTROAMPHETAMINE SACCHARATE\DEXTROAMPHETAMINE SULFATE
     Indication: NARCOLEPSY
  4. LATUDA [Concomitant]
     Active Substance: LURASIDONE HYDROCHLORIDE
  5. XYREM [Suspect]
     Active Substance: SODIUM OXYBATE
     Dosage: 2.5 G, BID
     Route: 048
     Dates: start: 2016
  6. GABAPENTIN. [Concomitant]
     Active Substance: GABAPENTIN
  7. VIAGRA [Concomitant]
     Active Substance: SILDENAFIL CITRATE
  8. IBUPROFEN. [Concomitant]
     Active Substance: IBUPROFEN
  9. MODAFINIL. [Concomitant]
     Active Substance: MODAFINIL

REACTIONS (4)
  - Fatigue [Not Recovered/Not Resolved]
  - Unevaluable event [Not Recovered/Not Resolved]
  - Drug ineffective [Unknown]
  - Loss of consciousness [Not Recovered/Not Resolved]

NARRATIVE: CASE EVENT DATE: 2016
